FAERS Safety Report 4367079-7 (Version None)
Quarter: 2004Q2

REPORT INFORMATION
  Report Type: 
  Country: None (occurrence: None)
  Receive Date: 20040528
  Receipt Date: 20020812
  Transmission Date: 20050107
  Serious: Yes (Hospitalization, Disabling, Other)
  Sender: FDA-Public Use
  Company Number: US-MERCK-0208USA02294

PATIENT
  Age: 84 Year
  Sex: Female
  Weight: 84 kg

DRUGS (5)
  1. ASPIRIN [Concomitant]
     Indication: PROPHYLAXIS
     Route: 065
  2. CELEBREX [Concomitant]
     Indication: ARTHRITIS
     Route: 065
  3. GLYBURIDE [Concomitant]
     Indication: DIABETES MELLITUS
     Route: 065
  4. PRINIVIL [Concomitant]
     Indication: HYPERTENSION
     Route: 065
  5. VIOXX [Suspect]
     Indication: ARTHRITIS
     Route: 048
     Dates: start: 19990101

REACTIONS (28)
  - ANAEMIA [None]
  - ANGINA PECTORIS [None]
  - BLOOD PRESSURE INCREASED [None]
  - CEREBROVASCULAR ACCIDENT [None]
  - CONFUSIONAL STATE [None]
  - DEMENTIA [None]
  - DEPRESSION [None]
  - DIABETES MELLITUS [None]
  - DISORIENTATION [None]
  - EMOTIONAL DISTRESS [None]
  - FALL [None]
  - FLATULENCE [None]
  - GASTROENTERITIS [None]
  - HYPERHIDROSIS [None]
  - HYPOGLYCAEMIA [None]
  - HYPOMAGNESAEMIA [None]
  - INJURY [None]
  - IRRITABILITY [None]
  - LACUNAR INFARCTION [None]
  - OSTEOPENIA [None]
  - PALLOR [None]
  - PROTEINURIA [None]
  - RETCHING [None]
  - SOMNOLENCE [None]
  - TROPONIN INCREASED [None]
  - URINARY INCONTINENCE [None]
  - URTICARIA [None]
  - VOMITING [None]
